FAERS Safety Report 11467313 (Version 1)
Quarter: 2015Q3

REPORT INFORMATION
  Report Type: Spontaneous
  Country: US (occurrence: US)
  Receive Date: 20150908
  Receipt Date: 20150908
  Transmission Date: 20151125
  Serious: No
  Sender: FDA-Public Use
  Company Number: PHEH2012US021793

PATIENT
  Sex: Female

DRUGS (18)
  1. VITAMIN D3 [Concomitant]
     Active Substance: CHOLECALCIFEROL
  2. VITAMIN C [Concomitant]
     Active Substance: ASCORBIC ACID
     Indication: PRODUCT USED FOR UNKNOWN INDICATION
     Route: 065
  3. EXELON PATCH [Suspect]
     Active Substance: RIVASTIGMINE
     Indication: PRODUCT USED FOR UNKNOWN INDICATION
     Dosage: 3.9 MG/24HOURS
     Route: 062
  4. CARVEDILOL. [Concomitant]
     Active Substance: CARVEDILOL
  5. VITAMIN K [Concomitant]
     Active Substance: PHYTONADIONE
  6. VITAMIN D [Concomitant]
     Active Substance: CHOLECALCIFEROL
     Indication: PRODUCT USED FOR UNKNOWN INDICATION
     Route: 065
  7. MAGNESIUM [Concomitant]
     Active Substance: MAGNESIUM
     Indication: PRODUCT USED FOR UNKNOWN INDICATION
     Route: 065
  8. LISINOPRIL. [Concomitant]
     Active Substance: LISINOPRIL
     Indication: PRODUCT USED FOR UNKNOWN INDICATION
     Route: 065
  9. FISH OIL [Concomitant]
     Active Substance: FISH OIL
  10. SUCRAFATE [Concomitant]
     Active Substance: SUCRALFATE
     Indication: PRODUCT USED FOR UNKNOWN INDICATION
     Route: 065
  11. EXELON PATCH [Suspect]
     Active Substance: RIVASTIGMINE
     Dosage: 4.6 MG, QD (9 MG RIVASTIGMINE BASE) (PATCH SIZE 5 CM2)
     Route: 062
  12. EXELON PATCH [Suspect]
     Active Substance: RIVASTIGMINE
     Dosage: 9.5 MG/24HOURS (18 MG RIVASRIGMINE BASE)(PATCH SIZE 10 CM2)
     Route: 062
  13. MULTI-VIT [Concomitant]
     Active Substance: VITAMINS
  14. OMEPRAZOLE. [Concomitant]
     Active Substance: OMEPRAZOLE
     Indication: PRODUCT USED FOR UNKNOWN INDICATION
     Route: 065
  15. OXYTROL [Concomitant]
     Active Substance: OXYBUTYNIN
  16. B6 [Concomitant]
     Active Substance: PYRIDOXINE HYDROCHLORIDE
  17. CALCIUM [Concomitant]
     Active Substance: CALCIUM
     Indication: PRODUCT USED FOR UNKNOWN INDICATION
     Dosage: 1200 MG, UNK
     Route: 065
  18. VITA A [Concomitant]
     Indication: PRODUCT USED FOR UNKNOWN INDICATION
     Route: 065

REACTIONS (6)
  - Incorrect dose administered [Unknown]
  - Malaise [Unknown]
  - Dizziness [Unknown]
  - Drug prescribing error [Unknown]
  - Drug intolerance [Unknown]
  - Hypoacusis [Unknown]
